FAERS Safety Report 8281911 (Version 2)
Quarter: 2013Q4

REPORT INFORMATION
  Report Type: Spontaneous
  Country: US (occurrence: US)
  Receive Date: 20111209
  Receipt Date: 20131230
  Transmission Date: 20140711
  Serious: Yes (Other)
  Sender: FDA-Public Use
  Company Number: US-BAYER-2011-115481

PATIENT
  Age: 37 Year
  Sex: Female

DRUGS (18)
  1. YASMIN [Suspect]
     Dosage: UNK
  2. OCELLA [Suspect]
     Dosage: UNK
  3. YAZ [Suspect]
     Dosage: UNK
  4. LEVOTHYROXINE [Concomitant]
     Dosage: .137 MG [AS WRITTEN] 1 TIME PER DAY [AS WRITTEN], 150 MCG, UNK
  5. ACIPHEX [Concomitant]
     Dosage: 1 TIME PER DAY
  6. OXYCODONE HYDROCHLORIDE [Concomitant]
     Dosage: 5 MG, UNK
  7. CLINDAMYCIN PHOSPHATE [Concomitant]
     Dosage: 1% SOLUTION [AS WRITTEN, UNK
  8. IBUPROFEN [Concomitant]
     Dosage: 800 MG, UNK
  9. NORFLEX [Concomitant]
     Dosage: 100 MG, PRN
  10. ORPHENADRINE [Concomitant]
     Dosage: 100 MG PRN
  11. NAPROSYN [Concomitant]
     Dosage: 500 MG, UNK
  12. TRAZODONE [Concomitant]
     Dosage: 100 MG, UNK
  13. ZOFRAN [Concomitant]
     Dosage: 4 MG, UNK
  14. NEXIUM [Concomitant]
     Dosage: 40 MG, UNK
  15. ASPIRIN [Concomitant]
     Dosage: UNK, PRN
  16. VALTREX [Concomitant]
     Dosage: 1 TIME PER DAY
  17. MOTRIN [Concomitant]
     Dosage: , PRNUNK
  18. LIPITOR [Concomitant]
     Dosage: 20 MG, 1 TIME PER DAY

REACTIONS (10)
  - Gallbladder disorder [None]
  - Cholecystitis chronic [None]
  - Biliary dyskinesia [None]
  - Organ failure [None]
  - Pain [None]
  - General physical health deterioration [None]
  - Anxiety [None]
  - Anhedonia [None]
  - Emotional distress [None]
  - Internal injury [None]
